FAERS Safety Report 6604378-X (Version None)
Quarter: 2010Q1

REPORT INFORMATION
  Report Type: 
  Country: None (occurrence: None)
  Receive Date: 20100226
  Receipt Date: 20090909
  Transmission Date: 20100710
  Serious: No
  Sender: FDA-Public Use
  Company Number: A0806560A

PATIENT
  Age: 28 Year
  Sex: Male

DRUGS (3)
  1. LAMOTRIGINE [Suspect]
     Indication: BIPOLAR DISORDER
     Dosage: 75MG PER DAY
     Route: 048
     Dates: start: 20081201
  2. DEPAKOTE [Concomitant]
  3. OLANZAPINE [Concomitant]

REACTIONS (1)
  - PARAESTHESIA [None]
